FAERS Safety Report 9831007 (Version 2)
Quarter: 2014Q1

REPORT INFORMATION
  Report Type: Report from Study
  Country: BR (occurrence: BR)
  Receive Date: 20140120
  Receipt Date: 20140211
  Transmission Date: 20141002
  Serious: Yes (Death)
  Sender: FDA-Public Use
  Company Number: PHHY2014BR005868

PATIENT
  Age: 76 Year
  Sex: Female
  Weight: 42 kg

DRUGS (6)
  1. ACLASTA [Suspect]
     Indication: OSTEOPOROSIS
     Dosage: 5 MG, ONCE A YEAR
     Route: 042
     Dates: start: 2010
  2. GALVUS [Concomitant]
     Indication: DIABETES MELLITUS
     Dosage: 1 DF, QD,ABOUT 3 YEARS AGO
     Route: 048
     Dates: start: 2010, end: 2013
  3. EXELON [Concomitant]
     Indication: DEMENTIA ALZHEIMER^S TYPE
     Dosage: 27MG/15CM2 1 DF, QD, ABOUT 3 YEARS AGO
     Route: 062
     Dates: start: 2011, end: 2013
  4. NEBILET [Concomitant]
     Indication: CARDIAC DISORDER
     Dosage: 1 DF, QD
     Route: 048
     Dates: start: 2010, end: 2013
  5. DIGEPLUS                           /01760901/ [Concomitant]
     Indication: DYSPEPSIA
     Dosage: UNK UKN, UNK
     Dates: start: 2012, end: 2013
  6. OMEPRAZOLE [Concomitant]
     Indication: DYSPEPSIA
     Dosage: UNK UKN, UNK
     Dates: start: 2012, end: 2013

REACTIONS (2)
  - Death [Fatal]
  - Infarction [Fatal]
